FAERS Safety Report 17884821 (Version 10)
Quarter: 2024Q4

REPORT INFORMATION
  Report Type: Report from Study
  Country: US (occurrence: US)
  Receive Date: 20200611
  Receipt Date: 20241212
  Transmission Date: 20250115
  Serious: Yes (Other)
  Sender: ROCHE
  Company Number: US-ROCHE-2303986

PATIENT
  Age: 93 Year
  Sex: Female
  Weight: 58.97 kg

DRUGS (11)
  1. ACTEMRA ACTPEN [Suspect]
     Active Substance: TOCILIZUMAB
     Indication: Giant cell arteritis
     Route: 058
  2. ACTEMRA ACTPEN [Suspect]
     Active Substance: TOCILIZUMAB
     Indication: Polymyalgia rheumatica
     Dosage: ONGOING: YES
     Route: 058
  3. ACTEMRA ACTPEN [Suspect]
     Active Substance: TOCILIZUMAB
     Indication: Blindness
     Dosage: ONGOING: YES
     Route: 058
  4. ACTEMRA ACTPEN [Suspect]
     Active Substance: TOCILIZUMAB
     Route: 058
  5. ACTEMRA ACTPEN [Suspect]
     Active Substance: TOCILIZUMAB
     Dosage: 0.9 ML
     Route: 058
  6. ACTEMRA ACTPEN [Suspect]
     Active Substance: TOCILIZUMAB
     Dosage: 0.9 ML
     Route: 058
  7. ELIQUIS [Concomitant]
     Active Substance: APIXABAN
     Dosage: ONE IN THE MORNING ONE IN THE EVENING BY ORAL TABLET
     Route: 048
     Dates: start: 2024
  8. GABAPENTIN [Concomitant]
     Active Substance: GABAPENTIN
     Dosage: ONE ORAL PILL IN THE EVENING
     Route: 048
  9. AMLODIPINE [Concomitant]
     Active Substance: AMLODIPINE BESYLATE
     Indication: Back pain
     Dosage: ONE ORAL PILL IN THE MORNING.
     Route: 048
     Dates: start: 2024
  10. LISINOPRIL [Concomitant]
     Active Substance: LISINOPRIL
     Indication: Blood pressure measurement
     Dosage: ONE TIME ORAL PILL IN THE MORNING
     Route: 048
  11. IBUPROFEN [Concomitant]
     Active Substance: IBUPROFEN
     Indication: Pain
     Route: 048

REACTIONS (14)
  - Eye disorder [Unknown]
  - Confusional state [Unknown]
  - Vision blurred [Recovered/Resolved]
  - Vision blurred [Unknown]
  - Somnolence [Unknown]
  - Off label use [Unknown]
  - Hypoacusis [Unknown]
  - Blindness [Unknown]
  - Pain [Unknown]
  - Diverticulitis [Recovered/Resolved]
  - Diverticulum intestinal [Recovered/Resolved]
  - Back pain [Not Recovered/Not Resolved]
  - Depression [Unknown]
  - Blood cholesterol [Unknown]

NARRATIVE: CASE EVENT DATE: 20240101
